FAERS Safety Report 19199303 (Version 1)
Quarter: 2021Q2

REPORT INFORMATION
  Report Type: Spontaneous
  Country: US (occurrence: US)
  Receive Date: 20210429
  Receipt Date: 20210429
  Transmission Date: 20210717
  Serious: No
  Sender: FDA-Public Use
  Company Number: None

PATIENT
  Age: 37 Year
  Weight: 116.1 kg

DRUGS (18)
  1. ALBUTEROL SUL 2.5 MG/3 ML SOLUTION [Concomitant]
     Dates: start: 20161019
  2. AMLODIPINE 10 MG [Concomitant]
     Active Substance: AMLODIPINE BESYLATE
     Dates: start: 20160513
  3. FLOVENT HFA 220 MCG/ACTUATION [Concomitant]
     Dates: start: 20170417
  4. BIKTARVY 50?200?25 MG TABLETS [Concomitant]
     Dates: start: 20190515
  5. LOSARTAN 100 MG [Concomitant]
     Active Substance: LOSARTAN
     Dates: start: 20160513
  6. METFORMIN ER [Suspect]
     Active Substance: METFORMIN HYDROCHLORIDE
     Indication: TYPE 2 DIABETES MELLITUS
     Route: 048
     Dates: start: 20170728, end: 20200331
  7. CLONAZEPAM 0.5 MG [Concomitant]
     Active Substance: CLONAZEPAM
     Dates: start: 20170829
  8. ESTRACE 2 MG [Concomitant]
     Dates: start: 20160609, end: 20200723
  9. HYDRALAZINE 50 MG [Concomitant]
     Dates: start: 20190830, end: 20191022
  10. JANUVIA [Concomitant]
     Active Substance: SITAGLIPTIN PHOSPHATE
     Dates: start: 20200331, end: 20210225
  11. FUROSEMIDE 40 MG [Concomitant]
     Active Substance: FUROSEMIDE
     Dates: start: 20160513
  12. VENTOLIN HFA [Concomitant]
     Active Substance: ALBUTEROL SULFATE
     Dates: start: 20160513, end: 20200806
  13. ALDACTONE 50 MG [Concomitant]
     Dates: start: 20160609
  14. PANTOPRAZOLE 40 MG DR [Concomitant]
     Dates: start: 20190830, end: 20200310
  15. CARVEDILOL 12.5 MG [Concomitant]
     Active Substance: CARVEDILOL
     Dates: start: 20160513
  16. CETIRIZINE [Concomitant]
     Active Substance: CETIRIZINE HYDROCHLORIDE
     Dates: start: 20160609, end: 20201231
  17. CYANOCOBALAMIN 2,000 MCG [Concomitant]
     Dates: start: 20200327
  18. FLONASE 50 MCG/ACTUATION [Concomitant]
     Dates: start: 20160906

REACTIONS (3)
  - Drug intolerance [None]
  - Abdominal discomfort [None]
  - Diarrhoea [None]

NARRATIVE: CASE EVENT DATE: 20210331
